FAERS Safety Report 12605765 (Version 2)
Quarter: 2016Q4

REPORT INFORMATION
  Report Type: Spontaneous
  Country: US (occurrence: US)
  Receive Date: 20160729
  Receipt Date: 20161103
  Transmission Date: 20170207
  Serious: Yes (Other)
  Sender: FDA-Public Use
  Company Number: US-TEVA-680883ACC

PATIENT
  Age: 19 Year
  Sex: Female
  Weight: 47.67 kg

DRUGS (1)
  1. PARAGARD T 380A [Suspect]
     Active Substance: COPPER
     Indication: CONTRACEPTION
     Dates: start: 20150928, end: 20160718

REACTIONS (5)
  - Vaginal haemorrhage [Unknown]
  - Device expulsion [Recovered/Resolved]
  - Device dislocation [Recovered/Resolved]
  - Pelvic pain [Unknown]
  - Menorrhagia [Unknown]

NARRATIVE: CASE EVENT DATE: 20160701
